FAERS Safety Report 5591179-7 (Version None)
Quarter: 2008Q1

REPORT INFORMATION
  Report Type: 
  Country: None (occurrence: None)
  Receive Date: 20080111
  Receipt Date: 20080103
  Transmission Date: 20080703
  Serious: Yes (Hospitalization)
  Sender: FDA-Public Use
  Company Number: 2008S1000108

PATIENT
  Sex: Female

DRUGS (3)
  1. FENTANYL TRANSDERMAL SYSTEM [Suspect]
     Dosage: 100 UG/HR; EVERY 3 DAYS; TRANSDERMAL, 200 UG/HR; X1, TRANSDERMAL
     Route: 062
     Dates: end: 20080101
  2. FENTANYL TRANSDERMAL SYSTEM [Suspect]
     Dosage: 100 UG/HR; EVERY 3 DAYS; TRANSDERMAL, 200 UG/HR; X1, TRANSDERMAL
     Route: 062
     Dates: start: 20080101
  3. PERCOCET [Concomitant]

REACTIONS (9)
  - BREAKTHROUGH PAIN [None]
  - DRUG EFFECT INCREASED [None]
  - GENERAL PHYSICAL HEALTH DETERIORATION [None]
  - LOSS OF CONSCIOUSNESS [None]
  - PNEUMONIA [None]
  - PULMONARY CONGESTION [None]
  - PULMONARY OEDEMA [None]
  - RESPIRATORY DISTRESS [None]
  - SEDATION [None]
